FAERS Safety Report 20562496 (Version 2)
Quarter: 2022Q1

REPORT INFORMATION
  Report Type: Spontaneous
  Country: US (occurrence: US)
  Receive Date: 20220307
  Receipt Date: 20220325
  Transmission Date: 20220423
  Serious: Yes (Other)
  Sender: FDA-Public Use
  Company Number: US-BIOGEN-2022BI01100529

PATIENT
  Sex: Female

DRUGS (1)
  1. VUMERITY [Suspect]
     Active Substance: DIROXIMEL FUMARATE
     Indication: Multiple sclerosis
     Dosage: MAINTENANCE DOSE
     Route: 065
     Dates: start: 20201102

REACTIONS (7)
  - Intervertebral disc protrusion [Unknown]
  - Blood pressure decreased [Recovered/Resolved]
  - Oxygen saturation decreased [Unknown]
  - Chronic obstructive pulmonary disease [Unknown]
  - Laboratory test abnormal [Unknown]
  - Muscular weakness [Not Recovered/Not Resolved]
  - Constipation [Not Recovered/Not Resolved]
